FAERS Safety Report 5761692-8 (Version None)
Quarter: 2008Q2

REPORT INFORMATION
  Report Type: 
  Country: None (occurrence: None)
  Receive Date: 20080602
  Receipt Date: 20080519
  Transmission Date: 20081010
  Serious: Yes (Other)
  Sender: FDA-Public Use
  Company Number: CC08-372

PATIENT
  Sex: Male

DRUGS (3)
  1. ALBUTEROL [Suspect]
     Indication: ASTHMA
     Dosage: 2 ACTUATIONS AS NEEDED
  2. ALBUTEROL [Suspect]
  3. ALBUTEROL [Suspect]

REACTIONS (3)
  - DRUG EFFECT DECREASED [None]
  - DRUG PRESCRIBING ERROR [None]
  - PHARMACEUTICAL PRODUCT COMPLAINT [None]
